FAERS Safety Report 9303496 (Version 1)
Quarter: 2013Q2

REPORT INFORMATION
  Report Type: Spontaneous
  Country: US (occurrence: None)
  Receive Date: 20130521
  Receipt Date: 20130521
  Transmission Date: 20140414
  Serious: No
  Sender: FDA-Public Use
  Company Number: None

PATIENT
  Age: 66 Year
  Sex: Female
  Weight: 74.39 kg

DRUGS (5)
  1. LANOXIN [Suspect]
     Indication: ATRIAL FIBRILLATION
     Dosage: .125MG QD?5/2 - 5/14 PRESENT
     Dates: start: 20130502, end: 20130514
  2. LANOXIN [Suspect]
     Indication: SUPRAVENTRICULAR TACHYCARDIA
     Dosage: .125MG QD?5/2 - 5/14 PRESENT
     Dates: start: 20130502, end: 20130514
  3. VERAPAMIL [Concomitant]
  4. PREMARIN [Concomitant]
  5. ALBUTEROL [Concomitant]

REACTIONS (6)
  - Flushing [None]
  - Dizziness [None]
  - Heart rate increased [None]
  - Blood pressure increased [None]
  - Dizziness [None]
  - Product substitution issue [None]
